FAERS Safety Report 13547782 (Version 1)
Quarter: 2017Q2

REPORT INFORMATION
  Report Type: Spontaneous
  Country: US (occurrence: US)
  Receive Date: 20170516
  Receipt Date: 20170516
  Transmission Date: 20170830
  Serious: No
  Sender: FDA-Public Use
  Company Number: US-BAUSCH-BL-2016-030868

PATIENT
  Age: 79 Year
  Sex: Female

DRUGS (2)
  1. REFRESH [Suspect]
     Active Substance: UNSPECIFIED INGREDIENT
     Indication: DRY EYE
     Dosage: AS NEEDED
     Route: 047
  2. LATANOPROST OPHTHALMIC SOLUTION 0.005% [Suspect]
     Active Substance: LATANOPROST
     Indication: IRITIS
     Route: 047
     Dates: start: 201606, end: 201611

REACTIONS (3)
  - Eyelid irritation [Not Recovered/Not Resolved]
  - Pruritus [Not Recovered/Not Resolved]
  - Skin burning sensation [Not Recovered/Not Resolved]

NARRATIVE: CASE EVENT DATE: 2016
